FAERS Safety Report 7885794-5 (Version None)
Quarter: 2011Q4

REPORT INFORMATION
  Report Type: 
  Country: None (occurrence: None)
  Receive Date: 20111102
  Receipt Date: 20110627
  Transmission Date: 20120403
  Serious: No
  Sender: FDA-Public Use
  Company Number: US-AMGEN-USASP2011032963

PATIENT
  Age: 49 Year
  Sex: Male

DRUGS (1)
  1. ENBREL [Suspect]
     Indication: RHEUMATOID ARTHRITIS
     Dosage: 50 MG, QWK
     Dates: start: 20060101

REACTIONS (7)
  - FACE INJURY [None]
  - HEART RATE DECREASED [None]
  - EPISTAXIS [None]
  - ASTHENIA [None]
  - HEAD DISCOMFORT [None]
  - DIZZINESS [None]
  - CHEST DISCOMFORT [None]
